FAERS Safety Report 17071086 (Version 1)
Quarter: 2019Q4

REPORT INFORMATION
  Report Type: Report from Study
  Country: CA (occurrence: CA)
  Receive Date: 20191125
  Receipt Date: 20191125
  Transmission Date: 20200122
  Serious: Yes (Death, Hospitalization, Other)
  Sender: FDA-Public Use
  Company Number: CA-PFIZER INC-2019508609

PATIENT
  Age: 67 Year
  Sex: Male

DRUGS (3)
  1. MORPHINE SULFATE. [Suspect]
     Active Substance: MORPHINE SULFATE
     Dosage: UNK
     Route: 065
  2. MEPOLIZUMAB [Suspect]
     Active Substance: MEPOLIZUMAB
     Indication: ASTHMA
     Dosage: 100 MG, UNK
     Route: 042
  3. MEPOLIZUMAB [Suspect]
     Active Substance: MEPOLIZUMAB
     Dosage: 100 MG, UNK
     Route: 042

REACTIONS (15)
  - Pneumonia [Fatal]
  - Ill-defined disorder [Fatal]
  - Nephrolithiasis [Fatal]
  - Asthma [Fatal]
  - Hospice care [Fatal]
  - Fatigue [Fatal]
  - Lower respiratory tract infection [Fatal]
  - Chronic obstructive pulmonary disease [Fatal]
  - Dyspnoea [Fatal]
  - Therapy cessation [Fatal]
  - Abnormal behaviour [Fatal]
  - Hallucination [Fatal]
  - Continuous positive airway pressure [Fatal]
  - Lung disorder [Fatal]
  - Respiratory tract congestion [Fatal]
